FAERS Safety Report 24333695 (Version 1)
Quarter: 2024Q3

REPORT INFORMATION
  Report Type: Spontaneous
  Country: AU (occurrence: AU)
  Receive Date: 20240918
  Receipt Date: 20240918
  Transmission Date: 20241016
  Serious: Yes (Other)
  Sender: VERTEX
  Company Number: AU-VERTEX PHARMACEUTICALS-2024-014575

PATIENT

DRUGS (1)
  1. TRIKAFTA [Suspect]
     Active Substance: ELEXACAFTOR\IVACAFTOR\TEZACAFTOR
     Indication: Cystic fibrosis
     Dosage: UNKNOWN DOSAGE REGIMEN
     Route: 048

REACTIONS (2)
  - Papilloedema [Unknown]
  - Intracranial pressure increased [Unknown]
